FAERS Safety Report 13020946 (Version 1)
Quarter: 2016Q4

REPORT INFORMATION
  Report Type: Spontaneous
  Country: RU (occurrence: RU)
  Receive Date: 20161212
  Receipt Date: 20161212
  Transmission Date: 20170207
  Serious: Yes (Life-Threatening, Disabling, Other)
  Sender: FDA-Public Use
  Company Number: RU-ASTRAZENECA-2016SF29340

PATIENT
  Age: 59 Year
  Sex: Female
  Weight: 52 kg

DRUGS (6)
  1. SYMBICORT [Suspect]
     Active Substance: BUDESONIDE\FORMOTEROL FUMARATE DIHYDRATE
     Indication: ASTHMA
     Dosage: 4.5MCG, TWO TIMES DAILY.
     Route: 055
     Dates: start: 2013
  2. INDAPAMIDE. [Concomitant]
     Active Substance: INDAPAMIDE
  3. BRILINTA [Suspect]
     Active Substance: TICAGRELOR
     Indication: ARTERIAL STENT INSERTION
     Route: 048
     Dates: start: 201607
  4. THROMBO ASS [Concomitant]
     Active Substance: ASPIRIN
  5. PRESTARIUM [Concomitant]
     Active Substance: PERINDOPRIL
  6. QUAMATEL [Concomitant]
     Active Substance: FAMOTIDINE

REACTIONS (4)
  - Product use issue [Unknown]
  - Ischaemic stroke [Unknown]
  - Aneurysm [Unknown]
  - Off label use [Unknown]

NARRATIVE: CASE EVENT DATE: 2014
